FAERS Safety Report 9102751 (Version 1)
Quarter: 2013Q1

REPORT INFORMATION
  Report Type: Report from Study
  Country: FR (occurrence: FR)
  Receive Date: 20130219
  Receipt Date: 20130219
  Transmission Date: 20140127
  Serious: Yes (Hospitalization)
  Sender: FDA-Public Use
  Company Number: FR-INCYTE CORPORATION-2013IN000250

PATIENT
  Sex: 0

DRUGS (1)
  1. INC424 [Suspect]
     Indication: POLYCYTHAEMIA VERA
     Dosage: 10 MG, BID
     Route: 048
     Dates: start: 201211

REACTIONS (2)
  - Adrenal haemorrhage [Recovered/Resolved with Sequelae]
  - Pulmonary alveolar haemorrhage [Unknown]
